FAERS Safety Report 6633141-9 (Version None)
Quarter: 2010Q1

REPORT INFORMATION
  Report Type: 
  Country: None (occurrence: None)
  Receive Date: 20100312
  Receipt Date: 20100303
  Transmission Date: 20100710
  Serious: Yes (Other)
  Sender: FDA-Public Use
  Company Number: PHEH2010US02824

PATIENT
  Sex: Female

DRUGS (3)
  1. EXFORGE [Suspect]
     Dosage: 320/ 5 MG
  2. INSULIN [Concomitant]
     Dosage: 4 TIMES A DAY
  3. ANALGESICS [Concomitant]

REACTIONS (2)
  - NECK INJURY [None]
  - SURGERY [None]
